FAERS Safety Report 20102204 (Version 2)
Quarter: 2021Q4

REPORT INFORMATION
  Report Type: Spontaneous
  Country: US (occurrence: US)
  Receive Date: 20211123
  Receipt Date: 20211124
  Transmission Date: 20220303
  Serious: Yes (Other)
  Sender: FDA-Public Use
  Company Number: US-PFIZER INC-202101565089

PATIENT
  Age: 86 Year
  Sex: Male

DRUGS (1)
  1. VYNDAMAX [Suspect]
     Active Substance: TAFAMIDIS
     Dosage: 61 MG

REACTIONS (16)
  - Lung neoplasm malignant [Unknown]
  - Nephrolithiasis [Unknown]
  - Atrial fibrillation [Unknown]
  - Sinus node dysfunction [Unknown]
  - Hypoxia [Unknown]
  - Benign prostatic hyperplasia [Unknown]
  - Rhinitis perennial [Unknown]
  - Rhinitis allergic [Unknown]
  - Emphysema [Unknown]
  - Arthralgia [Unknown]
  - Dysphagia [Unknown]
  - Impaired fasting glucose [Unknown]
  - Aortic valve stenosis [Unknown]
  - Essential hypertension [Unknown]
  - Bundle branch block left [Unknown]
  - Presyncope [Unknown]
